FAERS Safety Report 17845426 (Version 1)
Quarter: 2020Q2

REPORT INFORMATION
  Report Type: Spontaneous
  Country: NL (occurrence: NL)
  Receive Date: 20200601
  Receipt Date: 20200601
  Transmission Date: 20200714
  Serious: Yes (Other)
  Sender: FDA-Public Use
  Company Number: NL-MYLANLABS-2020M1052169

PATIENT
  Sex: Male
  Weight: 3.9 kg

DRUGS (2)
  1. FLUOXETINE [Suspect]
     Active Substance: FLUOXETINE HYDROCHLORIDE
     Indication: ANXIETY
  2. FLUOXETINE [Suspect]
     Active Substance: FLUOXETINE HYDROCHLORIDE
     Indication: DEPRESSION
     Dosage: 1D1
     Route: 064

REACTIONS (3)
  - Neonatal respiratory depression [Unknown]
  - Newborn persistent pulmonary hypertension [Unknown]
  - Foetal exposure during pregnancy [Unknown]
